FAERS Safety Report 16592344 (Version 2)
Quarter: 2019Q3

REPORT INFORMATION
  Report Type: Spontaneous
  Country: US (occurrence: US)
  Receive Date: 20190718
  Receipt Date: 20190730
  Transmission Date: 20191004
  Serious: No
  Sender: FDA-Public Use
  Company Number: US-NEUROCRINE BIOSCIENCES INC.-2019NBI01906

PATIENT
  Age: 27 Year
  Sex: Male

DRUGS (4)
  1. INGREZZA [Suspect]
     Active Substance: VALBENAZINE
     Dates: start: 2019, end: 2019
  2. INGREZZA [Suspect]
     Active Substance: VALBENAZINE
     Indication: TARDIVE DYSKINESIA
     Dates: start: 201905, end: 201905
  3. RISPERIDONE. [Concomitant]
     Active Substance: RISPERIDONE
  4. INGREZZA [Suspect]
     Active Substance: VALBENAZINE
     Dates: start: 201905, end: 2019

REACTIONS (3)
  - Drooling [Unknown]
  - Dry mouth [Recovered/Resolved]
  - Somnolence [Recovered/Resolved]

NARRATIVE: CASE EVENT DATE: 2019
